FAERS Safety Report 4640148-X (Version None)
Quarter: 2005Q2

REPORT INFORMATION
  Report Type: 
  Country: None (occurrence: None)
  Receive Date: 20050415
  Receipt Date: 20050415
  Transmission Date: 20051028
  Serious: No
  Sender: FDA-Public Use
  Company Number: None

PATIENT
  Sex: Female
  Weight: 60.5 kg

DRUGS (4)
  1. CISPLATIN [Suspect]
     Dosage: 100 MG/M2 ON DAYS 1 AND 22
     Dates: start: 20050321
  2. AFX-CB [Suspect]
     Dosage: 72 GY 42 FX FOR 6 WEEKS
  3. MORPHINE SULFATE [Concomitant]
  4. DURAGESIC PATCH [Concomitant]

REACTIONS (1)
  - DEEP VEIN THROMBOSIS [None]
